FAERS Safety Report 6013238 (Version 23)
Quarter: 2013Q3

REPORT INFORMATION
  Report Type: Spontaneous
  Country: US (occurrence: US)
  Receive Date: 20060328
  Receipt Date: 20130808
  Transmission Date: 20140515
  Serious: Yes (Death, Hospitalization, Other)
  Sender: FDA-Public Use
  Company Number: PHEH2006US03543

PATIENT
  Age: 64 Year
  Sex: Female
  Weight: 68.03 kg

DRUGS (52)
  1. LIBRAX [Concomitant]
  2. TYLOX [Concomitant]
  3. PHENERGAN ^AVENTIS PHARMA^ [Concomitant]
  4. ACTOS                                   /CAN/ [Concomitant]
  5. FLEXERIL [Concomitant]
  6. LABETALOL HYDROCHLORIDE [Concomitant]
  7. MAG-OX [Concomitant]
  8. NEXIUM [Concomitant]
  9. OXYCODONE HYDROCHLORIDE [Concomitant]
  10. PAROXETINE HYDROCHLORIDE [Concomitant]
  11. ZYRTEC [Concomitant]
  12. INFLUENZA VIRUS VACCINE [Concomitant]
  13. DEPO-MEDROL [Concomitant]
     Dosage: 80 MG, QD
  14. SOLU-MEDROL [Concomitant]
     Dosage: 125 MG, UNK
  15. KYTRIL [Concomitant]
     Dosage: 1 MG, UNK
  16. PEPCID [Concomitant]
     Dosage: 20 MG, UNK
  17. COUMADIN ^BOOTS^ [Concomitant]
  18. INSULIN [Concomitant]
  19. PROTONIX ^PHARMACIA^ [Concomitant]
  20. XANAX [Concomitant]
  21. AREDIA [Suspect]
     Dosage: 90 MG, QMO
     Route: 042
     Dates: start: 19990602
  22. AREDIA [Suspect]
     Dosage: 60 MG, QMO
     Dates: start: 20061002, end: 20070208
  23. AREDIA [Suspect]
     Dosage: 90 MG, QW4
     Dates: start: 20010908, end: 20060202
  24. AREDIA [Suspect]
     Dosage: 60 MG
     Route: 042
     Dates: start: 20060210
  25. AREDIA [Suspect]
     Dates: start: 20061215
  26. AREDIA [Suspect]
     Dosage: 60 MG, Q8WK
     Dates: start: 20070208, end: 20071031
  27. AREDIA [Suspect]
  28. ZOMETA [Suspect]
  29. PREDNISONE [Concomitant]
     Indication: PLASMA CELL MYELOMA
     Dosage: 5 MG, UNK
     Route: 048
  30. ATIVAN [Concomitant]
     Indication: ANXIETY
  31. EFFEXOR [Concomitant]
  32. PREMPHASE [Concomitant]
  33. NEURONTIN [Concomitant]
  34. ZOFRAN [Concomitant]
  35. PREMARIN TABLET [Concomitant]
  36. ZOLOFT [Concomitant]
  37. ANZEMET [Concomitant]
  38. DURAGESIC [Concomitant]
     Indication: PAIN IN JAW
  39. ARANESP [Concomitant]
  40. VALIUM [Concomitant]
  41. LIMBITROL [Concomitant]
  42. REGLAN [Concomitant]
  43. ZANTAC [Concomitant]
  44. MOBIC [Concomitant]
  45. LASIX [Concomitant]
  46. KLOR-CON [Concomitant]
  47. GAMMA GLOBULIN [Concomitant]
     Route: 042
  48. COZAAR [Concomitant]
  49. ANTIVERT ^PFIZER^ [Concomitant]
  50. LOPRESSOR [Concomitant]
  51. AVANDIA [Concomitant]
  52. LOMOTIL [Concomitant]

REACTIONS (135)
  - Cardiac arrest [Fatal]
  - Coronary artery disease [Fatal]
  - Pneumonia [Unknown]
  - Plasma cell myeloma [Recovering/Resolving]
  - Urinary incontinence [Unknown]
  - Angioedema [Recovering/Resolving]
  - Pyrexia [Unknown]
  - Renal failure acute [Unknown]
  - Phlebitis [Unknown]
  - Nausea [Unknown]
  - Intervertebral disc displacement [Unknown]
  - Anaemia of chronic disease [Unknown]
  - Vomiting [Unknown]
  - Dysphagia [Unknown]
  - Abdominal pain [Unknown]
  - Diarrhoea [Unknown]
  - Pneumonia aspiration [Unknown]
  - Vocal cord paralysis [Unknown]
  - Pulmonary hypertension [Unknown]
  - Hypocalcaemia [Unknown]
  - Respiratory failure [Unknown]
  - Rales [Unknown]
  - Tachypnoea [Unknown]
  - Back pain [Unknown]
  - Osteonecrosis of jaw [Not Recovered/Not Resolved]
  - Bone disorder [Unknown]
  - Mouth ulceration [Unknown]
  - Dental discomfort [Unknown]
  - Dental caries [Unknown]
  - Jaw disorder [Unknown]
  - Pain in jaw [Unknown]
  - Weight decreased [Unknown]
  - Decreased appetite [Unknown]
  - Denture wearer [Unknown]
  - Gingivitis [Unknown]
  - Wound [Unknown]
  - Periodontal disease [Unknown]
  - Infection [Unknown]
  - Osteomyelitis [Unknown]
  - Type 2 diabetes mellitus [Unknown]
  - Gastrooesophageal reflux disease [Unknown]
  - Deep vein thrombosis [Unknown]
  - Interstitial lung disease [Unknown]
  - Dyspnoea exertional [Unknown]
  - Histoplasmosis [Unknown]
  - Bronchiectasis [Unknown]
  - Pleural fibrosis [Unknown]
  - Bone cancer [Unknown]
  - Anaphylactic reaction [Recovering/Resolving]
  - Hypertension [Unknown]
  - Spinal osteoarthritis [Unknown]
  - Anxiety [Unknown]
  - Mitral valve prolapse [Unknown]
  - Hypoaesthesia [Unknown]
  - Intervertebral disc protrusion [Unknown]
  - Pleural effusion [Unknown]
  - Atelectasis [Unknown]
  - Cardiac failure chronic [Unknown]
  - Mental status changes [Unknown]
  - Tooth loss [Unknown]
  - Mastication disorder [Unknown]
  - Contusion [Unknown]
  - Fall [Unknown]
  - Osteomalacia [Unknown]
  - Diverticulum intestinal haemorrhagic [Unknown]
  - Oesophageal disorder [Unknown]
  - Haemorrhoids [Unknown]
  - Weight increased [Unknown]
  - Faecal incontinence [Unknown]
  - Hiatus hernia [Unknown]
  - Oesophagitis [Unknown]
  - Faeces discoloured [Unknown]
  - Productive cough [Unknown]
  - Impaired gastric emptying [Unknown]
  - Cardiac septal defect [Unknown]
  - Supraventricular tachycardia [Unknown]
  - Atrial fibrillation [Unknown]
  - Myocardial infarction [Unknown]
  - Polyuria [Unknown]
  - Tachycardia [Unknown]
  - Cerebrospinal fluid leakage [Unknown]
  - Syncope [Unknown]
  - Head injury [Unknown]
  - Pulmonary mass [Unknown]
  - Cardiomegaly [Unknown]
  - Loss of consciousness [Unknown]
  - Cataract [Unknown]
  - Blepharitis [Unknown]
  - Erythema [Unknown]
  - Bone neoplasm [Unknown]
  - Bone marrow reticulin fibrosis [Unknown]
  - Dyspnoea [Unknown]
  - Pulmonary oedema [Unknown]
  - Hypogammaglobulinaemia [Unknown]
  - Limb injury [Unknown]
  - Bone fragmentation [Unknown]
  - Haematochezia [Unknown]
  - Pericardial effusion [Unknown]
  - Lumbar spinal stenosis [Unknown]
  - Spondylolisthesis [Unknown]
  - Osteoporosis [Unknown]
  - Bone lesion [Unknown]
  - Exposed bone in jaw [Unknown]
  - Mass [Unknown]
  - Osteosclerosis [Unknown]
  - Tenderness [Unknown]
  - Lip swelling [Unknown]
  - Osteoradionecrosis [Unknown]
  - Arrhythmia [Unknown]
  - Gastrointestinal haemorrhage [Unknown]
  - Adrenal insufficiency [Unknown]
  - Metabolic acidosis [Unknown]
  - Peripheral arterial occlusive disease [Unknown]
  - Intermittent claudication [Unknown]
  - Synovial cyst [Unknown]
  - Respiration abnormal [Unknown]
  - Lung infiltration [Unknown]
  - Clostridium difficile colitis [Unknown]
  - Depression [Unknown]
  - Road traffic accident [Unknown]
  - Ileus paralytic [Unknown]
  - Hypomagnesaemia [Unknown]
  - Hypokalaemia [Unknown]
  - Angina pectoris [Unknown]
  - Hypoxia [Unknown]
  - Endocrine disorder [Unknown]
  - Arthritis [Unknown]
  - Asthma [Unknown]
  - Glaucoma [Unknown]
  - Gastric polyps [Unknown]
  - Arteritis [Unknown]
  - Gastritis [Unknown]
  - Intervertebral disc degeneration [Unknown]
  - Radiculitis [Unknown]
  - Arthropathy [Unknown]
